FAERS Safety Report 9293849 (Version 3)
Quarter: 2013Q3

REPORT INFORMATION
  Report Type: Report from Study
  Country: US (occurrence: US)
  Receive Date: 20130516
  Receipt Date: 20130711
  Transmission Date: 20140515
  Serious: Yes (Other)
  Sender: FDA-Public Use
  Company Number: US-ABBOTT-13P-163-1089256-00

PATIENT
  Age: 56 Year
  Sex: Female
  Weight: 77.18 kg

DRUGS (15)
  1. HUMIRA [Suspect]
     Indication: PSORIATIC ARTHROPATHY
     Route: 058
     Dates: start: 20110719, end: 2012
  2. HUMIRA [Suspect]
     Route: 058
     Dates: start: 201301
  3. AMLODIPINE [Concomitant]
     Indication: BLOOD PRESSURE
  4. MOTRIN [Concomitant]
     Indication: PAIN
  5. VITAMIN D [Concomitant]
     Indication: PRODUCT USED FOR UNKNOWN INDICATION
  6. ULTRACET [Concomitant]
     Indication: RESTLESS LEGS SYNDROME
     Dosage: 37.5/325 MG 1 - 2 TABS AT HOUR OF SLEEP
  7. FOLIC ACID [Concomitant]
     Indication: PRODUCT USED FOR UNKNOWN INDICATION
  8. GENERIC ZYRTEC [Concomitant]
     Indication: HYPERSENSITIVITY
  9. FISH OIL [Concomitant]
     Indication: PRODUCT USED FOR UNKNOWN INDICATION
  10. PREVACID [Concomitant]
     Indication: GASTROOESOPHAGEAL REFLUX DISEASE
  11. QVAR [Concomitant]
     Indication: ASTHMA
  12. VENTOLIN INHALER [Concomitant]
     Indication: ASTHMA
  13. ALBUTEROL VIALS FOR NEBULIZER [Concomitant]
     Indication: ASTHMA
  14. METHOTREXATE [Concomitant]
     Indication: PSORIATIC ARTHROPATHY
  15. METHOTREXATE [Concomitant]

REACTIONS (7)
  - Trigger finger [Not Recovered/Not Resolved]
  - Tenosynovitis stenosans [Unknown]
  - Psoriasis [Unknown]
  - Psoriatic arthropathy [Unknown]
  - Joint stiffness [Unknown]
  - Arthralgia [Unknown]
  - Pain [Unknown]
